FAERS Safety Report 9705027 (Version 1)
Quarter: 2013Q4

REPORT INFORMATION
  Report Type: Spontaneous
  Country: US (occurrence: US)
  Receive Date: 20131122
  Receipt Date: 20131122
  Transmission Date: 20140711
  Serious: No
  Sender: FDA-Public Use
  Company Number: US-ABBVIE-13P-163-1109025-00

PATIENT
  Sex: Male
  Weight: 97.61 kg

DRUGS (8)
  1. ANDROGEL [Suspect]
     Indication: BLOOD TESTOSTERONE DECREASED
     Dosage: 2 PUMPS, ONCE DAILY
     Route: 062
     Dates: start: 201209, end: 201212
  2. ANDROGEL [Suspect]
     Dosage: 4 PUMPS ONCE DAILY
     Route: 062
     Dates: start: 201212, end: 201306
  3. ANDROGEL [Suspect]
     Indication: BLOOD TESTOSTERONE DECREASED
     Dosage: 6-8 PUMPS ONCE DAILY
     Route: 062
     Dates: end: 201209
  4. ANDROGEL [Suspect]
     Dosage: 6 PUMPS ONCE DAILY
     Route: 062
     Dates: start: 201306
  5. HUMALOG [Concomitant]
     Indication: DIABETES MELLITUS
     Route: 058
  6. LOVASTATIN [Concomitant]
     Indication: BLOOD CHOLESTEROL INCREASED
  7. UNKNOWN VITAMINS [Concomitant]
     Indication: ROUTINE HEALTH MAINTENANCE
  8. OVER-THE-COUNTER HERBAL [Concomitant]
     Indication: ROUTINE HEALTH MAINTENANCE

REACTIONS (3)
  - Fatigue [Recovered/Resolved]
  - Decreased activity [Recovered/Resolved]
  - Blood testosterone decreased [Recovering/Resolving]
